FAERS Safety Report 22270877 (Version 1)
Quarter: 2023Q2

REPORT INFORMATION
  Report Type: Spontaneous
  Country: US (occurrence: US)
  Receive Date: 20230501
  Receipt Date: 20230501
  Transmission Date: 20230722
  Serious: Yes (Hospitalization, Other)
  Sender: FDA-Public Use
  Company Number: US-MYLANLABS-2023M1046223

PATIENT
  Sex: Male

DRUGS (1)
  1. CYSTEAMINE [Suspect]
     Active Substance: CYSTEAMINE
     Indication: Cystinosis
     Dosage: 1 GTT DROPS, QID
     Route: 047

REACTIONS (4)
  - Infection [Unknown]
  - Urinary tract infection [Unknown]
  - Kidney infection [Unknown]
  - Seizure [Unknown]

NARRATIVE: CASE EVENT DATE: 20230421
